FAERS Safety Report 4663052-X (Version None)
Quarter: 2005Q2

REPORT INFORMATION
  Report Type: 
  Country: None (occurrence: None)
  Receive Date: 20050513
  Receipt Date: 20050401
  Transmission Date: 20051028
  Serious: Yes (Death, Hospitalization)
  Sender: FDA-Public Use
  Company Number: AWBNIASPAND2004-79

PATIENT
  Age: 63 Year
  Sex: Male

DRUGS (4)
  1. NIASPAN [Suspect]
     Indication: DYSLIPIDAEMIA
     Dosage: 375 MG QD; PO
     Route: 048
     Dates: start: 20040527
  2. SIMVASTATIN [Concomitant]
  3. BISOPROLOL FUMARATE [Concomitant]
  4. CLEXANE [Concomitant]

REACTIONS (1)
  - MYOCARDIAL INFARCTION [None]
